FAERS Safety Report 9168363 (Version 1)
Quarter: 2013Q1

REPORT INFORMATION
  Report Type: Spontaneous
  Country: IN (occurrence: None)
  Receive Date: 20130305
  Receipt Date: 20130305
  Transmission Date: 20140127
  Serious: Yes (Hospitalization, Other)
  Sender: FDA-Public Use
  Company Number: AUR-APL-2013-01746

PATIENT
  Age: 40 Year
  Sex: Male

DRUGS (6)
  1. LAMIVUDINE [Suspect]
     Indication: ANTIRETROVIRAL THERAPY
  2. STAVUDINE [Suspect]
     Indication: ANTIRETROVIRAL THERAPY
  3. NEVIRAPINE [Suspect]
     Indication: ANTIRETROVIRAL THERAPY
  4. EMTRICITABINE [Suspect]
     Indication: ANTIRETROVIRAL THERAPY
  5. TENOFOVIR [Suspect]
     Indication: ANTIRETROVIRAL THERAPY
  6. CO-TRIMOXAZOLE (CO-TRIMOXAZOLE) [Concomitant]

REACTIONS (9)
  - Meningitis cryptococcal [None]
  - Abdominal pain [None]
  - Anaemia [None]
  - Hydrocephalus [None]
  - Toxoplasmosis [None]
  - Cytomegalovirus chorioretinitis [None]
  - Opportunistic infection [None]
  - Immune reconstitution inflammatory syndrome [None]
  - Economic problem [None]
